FAERS Safety Report 19303614 (Version 1)
Quarter: 2021Q2

REPORT INFORMATION
  Report Type: Report from Study
  Country: None (occurrence: US)
  Receive Date: 20210525
  Receipt Date: 20210525
  Transmission Date: 20210717
  Serious: Yes (Other)
  Sender: FDA-Public Use
  Company Number: US-ABBVIE-21K-163-3914937-00

PATIENT
  Sex: Female

DRUGS (3)
  1. COVID?19 VACCINE NOS. [Suspect]
     Active Substance: COVID-19 VACCINE NOS
     Indication: COVID-19 IMMUNISATION
     Route: 030
     Dates: start: 20210224, end: 20210224
  2. COVID?19 VACCINE NOS. [Suspect]
     Active Substance: COVID-19 VACCINE NOS
     Route: 030
     Dates: start: 20210324, end: 20210324
  3. SKYRIZI [Suspect]
     Active Substance: RISANKIZUMAB-RZAA
     Indication: PSORIASIS
     Route: 058

REACTIONS (6)
  - Eye disorder [Unknown]
  - Pallor [Recovering/Resolving]
  - Psoriasis [Recovering/Resolving]
  - Therapeutic response shortened [Recovering/Resolving]
  - Glucose tolerance impaired [Unknown]
  - Weight increased [Unknown]

NARRATIVE: CASE EVENT DATE: 2021
